FAERS Safety Report 5892302-7 (Version None)
Quarter: 2008Q3

REPORT INFORMATION
  Report Type: 
  Country: None (occurrence: None)
  Receive Date: 20080919
  Receipt Date: 20080908
  Transmission Date: 20090109
  Serious: Yes (Hospitalization)
  Sender: FDA-Public Use
  Company Number: SPV1-2008-01933

PATIENT
  Age: 3 Year
  Sex: Male

DRUGS (1)
  1. ELAPRASE [Suspect]
     Indication: MUCOPOLYSACCHARIDOSIS II
     Dosage: 7 MG, 1X/WEEK, IV DRIP
     Route: 041
     Dates: start: 20070515

REACTIONS (3)
  - HEAD INJURY [None]
  - SHUNT MALFUNCTION [None]
  - SUBDURAL HAEMATOMA [None]
